FAERS Safety Report 17225372 (Version 2)
Quarter: 2020Q2

REPORT INFORMATION
  Report Type: Spontaneous
  Country: US (occurrence: US)
  Receive Date: 20200102
  Receipt Date: 20200602
  Transmission Date: 20200713
  Serious: Yes (Other)
  Sender: FDA-Public Use
  Company Number: US-ASTRAZENECA-2019SF91689

PATIENT
  Age: 25622 Day
  Sex: Female
  Weight: 59 kg

DRUGS (36)
  1. TRAMADOL. [Concomitant]
     Active Substance: TRAMADOL
  2. PROMETHAZINE [Concomitant]
     Active Substance: PROMETHAZINE HYDROCHLORIDE
  3. ALPRAZOLAM. [Concomitant]
     Active Substance: ALPRAZOLAM
  4. TOPIRAMATE. [Concomitant]
     Active Substance: TOPIRAMATE
  5. PROPANOLOL [Concomitant]
     Active Substance: PROPRANOLOL HYDROCHLORIDE
  6. PROGESTERONE. [Concomitant]
     Active Substance: PROGESTERONE
  7. ARMOUR THYROID [Concomitant]
     Active Substance: THYROID, PORCINE
  8. SELEGILINE [Concomitant]
     Active Substance: SELEGILINE
  9. WELLBUTRIN [Concomitant]
     Active Substance: BUPROPION HYDROCHLORIDE
  10. NEXIUM [Suspect]
     Active Substance: ESOMEPRAZOLE MAGNESIUM
     Indication: ABDOMINAL DISCOMFORT
     Route: 048
     Dates: start: 2009, end: 2019
  11. LEVAQUIN [Concomitant]
     Active Substance: LEVOFLOXACIN
  12. LASIX [Concomitant]
     Active Substance: FUROSEMIDE
  13. CEPHALEXIN. [Concomitant]
     Active Substance: CEPHALEXIN
  14. REQUIP [Concomitant]
     Active Substance: ROPINIROLE HYDROCHLORIDE
  15. MIRTAZAPINE. [Concomitant]
     Active Substance: MIRTAZAPINE
  16. TYLENOL [Concomitant]
     Active Substance: ACETAMINOPHEN
     Indication: HEADACHE
  17. MYRBETRIQ [Concomitant]
     Active Substance: MIRABEGRON
  18. BUPRENORPHINE. [Concomitant]
     Active Substance: BUPRENORPHINE
  19. METOPROLOL SUCCINATE. [Concomitant]
     Active Substance: METOPROLOL SUCCINATE
  20. ELIQUIS [Concomitant]
     Active Substance: APIXABAN
  21. METRONIDAZOLE. [Concomitant]
     Active Substance: METRONIDAZOLE
  22. AGGRENOX [Concomitant]
     Active Substance: ASPIRIN\DIPYRIDAMOLE
  23. ZOFRAN [Concomitant]
     Active Substance: ONDANSETRON HYDROCHLORIDE
  24. PREVACID [Suspect]
     Active Substance: LANSOPRAZOLE
     Indication: ABDOMINAL DISCOMFORT
     Dosage: GENERIC
     Route: 065
     Dates: start: 2009, end: 2019
  25. MYLANTA [Concomitant]
     Active Substance: ALUMINUM HYDROXIDE\DIMETHICONE\MAGNESIUM HYDROXIDE
  26. LEVODOPA-CARBIDOPA [Concomitant]
     Active Substance: CARBIDOPA\LEVODOPA
  27. AVAPRO [Concomitant]
     Active Substance: IRBESARTAN
  28. AMOXICILLIN. [Concomitant]
     Active Substance: AMOXICILLIN
  29. PREVACID [Suspect]
     Active Substance: LANSOPRAZOLE
     Indication: ABDOMINAL DISCOMFORT
     Route: 065
     Dates: start: 2009, end: 2019
  30. PROZAC [Concomitant]
     Active Substance: FLUOXETINE HYDROCHLORIDE
  31. PROAIR HFA [Concomitant]
     Active Substance: ALBUTEROL SULFATE
  32. AMIODARONE [Concomitant]
     Active Substance: AMIODARONE
  33. ABILIFY [Concomitant]
     Active Substance: ARIPIPRAZOLE
  34. CYMBALTA [Concomitant]
     Active Substance: DULOXETINE HYDROCHLORIDE
  35. PREVACID [Suspect]
     Active Substance: LANSOPRAZOLE
     Indication: ABDOMINAL DISCOMFORT
     Dosage: GENERIC
     Route: 065
  36. PRAVASTATIN. [Concomitant]
     Active Substance: PRAVASTATIN

REACTIONS (5)
  - Nephrogenic anaemia [Unknown]
  - Chronic kidney disease [Not Recovered/Not Resolved]
  - Acute kidney injury [Not Recovered/Not Resolved]
  - Tubulointerstitial nephritis [Unknown]
  - Renal failure [Unknown]

NARRATIVE: CASE EVENT DATE: 20170410
